FAERS Safety Report 7584519-0 (Version None)
Quarter: 2011Q2

REPORT INFORMATION
  Report Type: 
  Country: None (occurrence: None)
  Receive Date: 20110630
  Receipt Date: 20110622
  Transmission Date: 20111010
  Serious: Yes (Hospitalization)
  Sender: FDA-Public Use
  Company Number: US-VERTEX PHARMACEUTICALS INC.-AE-2011-000165

PATIENT
  Sex: Female
  Weight: 85.806 kg

DRUGS (5)
  1. NADOLOL [Concomitant]
     Indication: VARICES OESOPHAGEAL
     Route: 048
  2. VX-950 [Suspect]
     Indication: HEPATITIS C
     Route: 048
     Dates: start: 20110228, end: 20110421
  3. PEGASYS [Suspect]
     Route: 058
     Dates: start: 20110330, end: 20110421
  4. COPEGUS [Suspect]
     Indication: HEPATITIS C
     Route: 048
     Dates: start: 20110228, end: 20110421
  5. PEGASYS [Suspect]
     Indication: HEPATITIS C
     Route: 058
     Dates: start: 20110228, end: 20110329

REACTIONS (4)
  - SYNCOPE [None]
  - ELECTROCARDIOGRAM T WAVE INVERSION [None]
  - PULMONARY HYPERTENSION [None]
  - DYSPNOEA EXERTIONAL [None]
